FAERS Safety Report 17224602 (Version 1)
Quarter: 2020Q1

REPORT INFORMATION
  Report Type: Spontaneous
  Country: DE (occurrence: DE)
  Receive Date: 20200102
  Receipt Date: 20200102
  Transmission Date: 20200409
  Serious: Yes (Hospitalization)
  Sender: FDA-Public Use
  Company Number: DE-PFIZER INC-2019559819

PATIENT
  Sex: Female

DRUGS (1)
  1. AZULFIDINE [Suspect]
     Active Substance: SULFASALAZINE
     Dosage: 2 DF, 2X/DAY
     Dates: start: 20191028, end: 201912

REACTIONS (1)
  - Arrhythmia [Unknown]
